FAERS Safety Report 5133778-2 (Version None)
Quarter: 2006Q4

REPORT INFORMATION
  Report Type: 
  Country: None (occurrence: None)
  Receive Date: 20061018
  Receipt Date: 19990519
  Transmission Date: 20070319
  Serious: Yes (Death, Other)
  Sender: FDA-Public Use
  Company Number: 2006115752

PATIENT
  Age: 69 Year
  Sex: Male

DRUGS (10)
  1. IRINOTECAN HCL [Suspect]
     Indication: SMALL CELL LUNG CANCER STAGE UNSPECIFIED
     Dosage: 100 MG/M*2, INTRAVENOUS
     Route: 042
     Dates: start: 19990218, end: 19990304
  2. AMINO ACIDS (AMINO ACIDS) [Concomitant]
  3. CEFOZOPRAN HYDROCHLORIDE (CEFOZOPRAN HYDROCHLORIDE) [Concomitant]
  4. CLINDAMYCIN PHOSPHATE [Concomitant]
  5. HANGE-SHASHIN-TO (HERBAL PREPARATION) [Concomitant]
  6. LENORGRASTIM (LENORGRASTIM) [Concomitant]
  7. METOCLOPRAMIDE [Concomitant]
  8. PHENYTOIN SODIUM [Concomitant]
  9. VALPROATE SODIUM [Concomitant]
  10. TEICOPLANIN (TEICOPLANIN) [Concomitant]

REACTIONS (11)
  - CONDITION AGGRAVATED [None]
  - CONTRAINDICATION TO MEDICAL TREATMENT [None]
  - DEPRESSED LEVEL OF CONSCIOUSNESS [None]
  - GRAND MAL CONVULSION [None]
  - HEPATIC FAILURE [None]
  - HYPOKALAEMIA [None]
  - LEUKOPENIA [None]
  - MALIGNANT NEOPLASM PROGRESSION [None]
  - METASTASES TO LIVER [None]
  - STATUS EPILEPTICUS [None]
  - THROMBOCYTOPENIA [None]
